FAERS Safety Report 7280736-8 (Version None)
Quarter: 2011Q1

REPORT INFORMATION
  Report Type: 
  Country: None (occurrence: None)
  Receive Date: 20110208
  Receipt Date: 20110201
  Transmission Date: 20110831
  Serious: Yes (Hospitalization)
  Sender: FDA-Public Use
  Company Number: B0698328A

PATIENT
  Age: 3 Year
  Sex: Female

DRUGS (1)
  1. AUGMENTIN [Suspect]
     Dosage: 5ML TWICE PER DAY
     Route: 048
     Dates: start: 20110125, end: 20110201

REACTIONS (2)
  - OVERDOSE [None]
  - NO ADVERSE EVENT [None]
